FAERS Safety Report 21408360 (Version 2)
Quarter: 2022Q4

REPORT INFORMATION
  Report Type: Spontaneous
  Country: IT (occurrence: IT)
  Receive Date: 20221004
  Receipt Date: 20221007
  Transmission Date: 20230112
  Serious: Yes (Death, Other)
  Sender: FDA-Public Use
  Company Number: None

PATIENT
  Age: 79 Year
  Sex: Male
  Weight: 77 kg

DRUGS (3)
  1. KEYTRUDA [Interacting]
     Active Substance: PEMBROLIZUMAB
     Indication: Squamous cell carcinoma of lung
     Dosage: 200 MILLIGRAM, 21 DAYS
     Route: 042
     Dates: start: 20211021, end: 20220908
  2. PACLITAXEL [Interacting]
     Active Substance: PACLITAXEL
     Dosage: 100MG/16.7ML
     Route: 042
     Dates: start: 20211021, end: 20220908
  3. CARBOPLATIN [Interacting]
     Active Substance: CARBOPLATIN
     Indication: Squamous cell carcinoma of lung
     Dosage: 195.5 MILLIGRAM, 7 DAYS
     Route: 042
     Dates: start: 20211021, end: 20220908

REACTIONS (1)
  - Haemolysis [Fatal]

NARRATIVE: CASE EVENT DATE: 20220915
